FAERS Safety Report 7557780-6 (Version None)
Quarter: 2011Q2

REPORT INFORMATION
  Report Type: 
  Country: None (occurrence: None)
  Receive Date: 20110620
  Receipt Date: 20110614
  Transmission Date: 20111010
  Serious: Yes (Other)
  Sender: FDA-Public Use
  Company Number: JP-TEVA-282713ISR

PATIENT
  Age: 58 Year
  Sex: Male

DRUGS (2)
  1. GEMCITABINE [Suspect]
     Indication: LUNG SQUAMOUS CELL CARCINOMA STAGE III
  2. CISPLATIN [Suspect]
     Indication: LUNG SQUAMOUS CELL CARCINOMA STAGE III

REACTIONS (2)
  - ELECTROCARDIOGRAM CHANGE [None]
  - HYPERSENSITIVITY [None]
